FAERS Safety Report 16611611 (Version 2)
Quarter: 2019Q3

REPORT INFORMATION
  Report Type: Spontaneous
  Country: US (occurrence: US)
  Receive Date: 20190722
  Receipt Date: 20190916
  Transmission Date: 20191004
  Serious: Yes (Hospitalization)
  Sender: FDA-Public Use
  Company Number: US-ALLERGAN-1922353US

PATIENT
  Sex: Female

DRUGS (2)
  1. TRIPTORELIN PAMOATE - BP [Suspect]
     Active Substance: TRIPTORELIN PAMOATE
     Dosage: 22.5 MG, SINGLE
     Route: 030
     Dates: start: 20190326, end: 20190326
  2. TRIPTORELIN PAMOATE - BP [Suspect]
     Active Substance: TRIPTORELIN PAMOATE
     Indication: PRODUCT USED FOR UNKNOWN INDICATION
     Dosage: 22.5 MG, SINGLE
     Route: 030
     Dates: start: 20190830, end: 20190830

REACTIONS (2)
  - Weight increased [Unknown]
  - Surgery [Unknown]

NARRATIVE: CASE EVENT DATE: 20190827
